FAERS Safety Report 7366519-9 (Version None)
Quarter: 2011Q1

REPORT INFORMATION
  Report Type: 
  Country: None (occurrence: None)
  Receive Date: 20110322
  Receipt Date: 20110210
  Transmission Date: 20110831
  Serious: Yes (Hospitalization, Other)
  Sender: FDA-Public Use
  Company Number: US-BAYER-201023682NA

PATIENT
  Sex: Female
  Weight: 116 kg

DRUGS (7)
  1. PHENTERMINE [Concomitant]
     Indication: DECREASED APPETITE
     Dosage: UNK
     Dates: start: 20070601, end: 20071001
  2. BENADRYL [Concomitant]
     Indication: MULTIPLE ALLERGIES
     Dosage: UNK UNK, PRN
  3. ALBUTEROL [Concomitant]
     Dosage: UNK UNK, PRN
  4. CIPRODEX [Concomitant]
     Dosage: UNK
     Dates: start: 20071101
  5. YASMIN [Suspect]
     Indication: ORAL CONTRACEPTION
     Dosage: UNK UNK, QD
     Route: 048
     Dates: start: 20071001, end: 20080701
  6. OCELLA [Suspect]
     Indication: ORAL CONTRACEPTION
     Dosage: UNK UNK, QD
     Route: 048
     Dates: start: 20080701, end: 20100101
  7. AMOXIL [Concomitant]
     Dosage: UNK
     Dates: start: 20070101

REACTIONS (16)
  - PANCREATITIS [None]
  - INJURY [None]
  - ABDOMINAL PAIN [None]
  - GASTROENTERITIS [None]
  - VOMITING [None]
  - BILE DUCT STONE [None]
  - ASTHENIA [None]
  - DYSPNOEA [None]
  - NAUSEA [None]
  - BLOOD AMYLASE INCREASED [None]
  - CHOLELITHIASIS [None]
  - PAIN [None]
  - ABDOMINAL PAIN UPPER [None]
  - GASTRITIS [None]
  - ABDOMINAL DISTENSION [None]
  - LIPASE INCREASED [None]
